FAERS Safety Report 12121029 (Version 1)
Quarter: 2016Q1

REPORT INFORMATION
  Report Type: Spontaneous
  Country: DE (occurrence: DE)
  Receive Date: 20160226
  Receipt Date: 20160226
  Transmission Date: 20160526
  Serious: Yes (Other)
  Sender: FDA-Public Use
  Company Number: DE-TEVA-636781GER

PATIENT
  Age: 76 Year
  Sex: Male

DRUGS (3)
  1. ASS 100 [Concomitant]
     Active Substance: ASPIRIN
     Route: 065
  2. DICLO-RATIOPHARM SCHMERZGEL [Suspect]
     Active Substance: DICLOFENAC
     Indication: PAIN MANAGEMENT
     Dosage: SINCE LAST WEEK, DAILY
     Route: 061
  3. METOPROLOL-RATIOPHARM NK RETARDTABLETTEN [Suspect]
     Active Substance: METOPROLOL
     Indication: PROPHYLAXIS
     Route: 048
     Dates: start: 201601

REACTIONS (4)
  - Product substitution issue [None]
  - Open angle glaucoma [None]
  - Ocular hypertension [Unknown]
  - Product substitution issue [Unknown]
